FAERS Safety Report 8026595-7 (Version None)
Quarter: 2012Q1

REPORT INFORMATION
  Report Type: 
  Country: None (occurrence: None)
  Receive Date: 20120106
  Receipt Date: 20111229
  Transmission Date: 20120608
  Serious: No
  Sender: FDA-Public Use
  Company Number: US-BIOGENIDEC-2011BI010966

PATIENT
  Age: 50 Year
  Sex: Female

DRUGS (1)
  1. TYSABRI [Suspect]
     Indication: MULTIPLE SCLEROSIS
     Route: 042
     Dates: start: 20100422

REACTIONS (6)
  - BALANCE DISORDER [None]
  - HEADACHE [None]
  - DRUG DOSE OMISSION [None]
  - FALL [None]
  - GAIT DISTURBANCE [None]
  - MULTIPLE SCLEROSIS [None]
